FAERS Safety Report 9560115 (Version 4)
Quarter: 2013Q4

REPORT INFORMATION
  Report Type: Spontaneous
  Country: TW (occurrence: None)
  Receive Date: 20130925
  Receipt Date: 20131017
  Transmission Date: 20140711
  Serious: Yes (Hospitalization)
  Sender: FDA-Public Use
  Company Number: SYM-2013-10918

PATIENT
  Age: 69 Year
  Sex: Male

DRUGS (18)
  1. 5-FU [Suspect]
     Indication: COLORECTAL CANCER METASTATIC
     Route: 040
     Dates: start: 20130306, end: 20130306
  2. BLINDED THERAPY(OTHER THERAPEUTIC PRODUCTS)(SOLUTION FOR INFUSION)(NULL) [Suspect]
     Indication: COLORECTAL CANCER METASTATIC
     Route: 042
     Dates: start: 20130306, end: 20130306
  3. IRINOTECAN [Suspect]
     Indication: COLORECTAL CANCER METASTATIC
     Route: 042
     Dates: start: 20130306, end: 20130306
  4. LEUCOVORIN [Suspect]
     Indication: COLORECTAL CANCER METASTATIC
     Route: 042
     Dates: start: 20130306, end: 20130306
  5. ATENOLOL (ATENOLOL) [Concomitant]
  6. ASPIRIN (ACETYLSALICYLIC ACID) [Concomitant]
  7. ACETYLCYSTEINE (ACETYLCYSTEINE) [Concomitant]
  8. KETOPROFEN (KETOPROFEN) [Concomitant]
  9. HYDROCORTISONE (HYDROCORTISONE) [Concomitant]
  10. FILGRASTIM (FILGRASTIM) [Concomitant]
  11. ORAL REHYDRATION SALT (ORAL REHYDRATION SALT) (GLUCOSE, SODIUM BICARBONATE, POTASSIUM CHLORIDE, SODIUM CHLORIDE) [Concomitant]
  12. METOCLOPRAMIDE (METOCLOPRAMIDE) [Concomitant]
  13. CHARCOAL, ACTIVATED [Concomitant]
  14. ATROPINE SULFATE/DIPHENOXYLATE HYDROCHLORIDE (LOMOTIL /00034001/) (ATROPINE SULFATE, DIPHENOXYLATE HYDROCHLORIDE) [Concomitant]
  15. FLUIMUCIL (ACETYLCYSTEINE) (ACETYLCYSTEINE) [Concomitant]
  16. ONDANSETRON (ONDANSETRON) [Concomitant]
  17. DEXAMETHASONE (DEXAMETHASONE) [Concomitant]
  18. ATROPINE (ATROPINE) [Concomitant]

REACTIONS (5)
  - Abdominal distension [None]
  - Diarrhoea [None]
  - Vomiting [None]
  - Abdominal pain [None]
  - Blood sodium decreased [None]
